FAERS Safety Report 9780975 (Version 2)
Quarter: 2013Q4

REPORT INFORMATION
  Report Type: Spontaneous
  Country: GB (occurrence: GB)
  Receive Date: 20131224
  Receipt Date: 20131224
  Transmission Date: 20140711
  Serious: Yes (Hospitalization)
  Sender: FDA-Public Use
  Company Number: PHFR2013GB005340

PATIENT
  Age: 60 Year
  Sex: Male
  Weight: 86.8 kg

DRUGS (6)
  1. CLOZARIL [Suspect]
     Indication: SCHIZOAFFECTIVE DISORDER
     Dosage: 400 MG, DAILY
     Route: 048
     Dates: start: 20130710
  2. CLOZARIL [Suspect]
     Indication: SCHIZOPHRENIA
  3. NAPROXEN [Concomitant]
     Indication: PAIN
     Dosage: 1000 MG, DAILY
     Route: 048
  4. SYMBICORT [Concomitant]
     Indication: ASTHMA
     Dosage: BID (1-2 PARTS BD)
     Route: 055
  5. ZOTON [Concomitant]
     Indication: ABDOMINAL DISCOMFORT
     Dosage: 30 MG, DAILY
     Route: 048
  6. LORAZEPAM [Concomitant]
     Indication: AGITATION
     Dosage: 1-2 MG
     Route: 048

REACTIONS (7)
  - Empyema [Unknown]
  - Dyspnoea [Unknown]
  - Lower respiratory tract infection [Unknown]
  - Asthma [Unknown]
  - White blood cell count increased [Recovering/Resolving]
  - Neutrophil count increased [Recovering/Resolving]
  - Eosinophil count increased [Unknown]
